FAERS Safety Report 4824247-5 (Version None)
Quarter: 2005Q4

REPORT INFORMATION
  Report Type: 
  Country: None (occurrence: None)
  Receive Date: 20051109
  Receipt Date: 20051003
  Transmission Date: 20060501
  Serious: Yes (Other)
  Sender: FDA-Public Use
  Company Number: PHBS2005FI14522

PATIENT
  Age: 73 Year
  Sex: Male

DRUGS (12)
  1. ZOMETA [Suspect]
     Indication: MULTIPLE MYELOMA
     Dosage: UNK, UNK
     Route: 042
     Dates: start: 20030101, end: 20050101
  2. MAREVAN [Concomitant]
     Dosage: 5 MG/D
     Route: 065
  3. PREDNISOLONE [Concomitant]
     Dosage: 100 MG, Q48H
     Route: 065
  4. NITROSID [Concomitant]
     Dosage: 20 MG/D
     Route: 065
  5. KERLON [Concomitant]
     Dosage: 20 MG/D
     Route: 065
  6. COZAAR [Concomitant]
     Dosage: 12.5 MG/D
     Route: 065
  7. FURESIS [Concomitant]
     Route: 065
  8. DIGOXIN [Concomitant]
     Route: 065
  9. LIPITOR [Concomitant]
     Route: 065
  10. METOPRAM [Concomitant]
     Route: 065
  11. KALCIPOS [Concomitant]
     Route: 065
  12. KALCIPOS [Concomitant]
     Route: 065

REACTIONS (2)
  - BONE DISORDER [None]
  - OSTEONECROSIS [None]
